FAERS Safety Report 18597696 (Version 5)
Quarter: 2021Q1

REPORT INFORMATION
  Report Type: Report from Study
  Country: JP (occurrence: JP)
  Receive Date: 20201209
  Receipt Date: 20210209
  Transmission Date: 20210419
  Serious: Yes (Other)
  Sender: FDA-Public Use
  Company Number: JP-PFIZER INC-2020-07445

PATIENT
  Age: 50 Year
  Sex: Male
  Weight: 92 kg

DRUGS (16)
  1. OPDIVO [Suspect]
     Active Substance: NIVOLUMAB
     Dosage: UNK
     Route: 041
     Dates: start: 202003
  2. MEKINIST [Suspect]
     Active Substance: TRAMETINIB DIMETHYL SULFOXIDE
     Dosage: REDUCED BY ONE LEVEL
     Route: 065
     Dates: start: 202007
  3. MEKTOVI [Suspect]
     Active Substance: BINIMETINIB
     Dosage: 90 MG, EVERYDAY
     Route: 048
     Dates: start: 20200103, end: 20200303
  4. PREDNISOLONE. [Concomitant]
     Active Substance: PREDNISOLONE
     Dosage: UNK, EVERYDAY
     Route: 048
  5. INTERFERON BETA NOS [Concomitant]
     Active Substance: INTERFERON BETA
     Indication: MALIGNANT MELANOMA
     Dosage: UNK
     Route: 065
     Dates: end: 20180806
  6. TAFINLAR [Suspect]
     Active Substance: DABRAFENIB MESYLATE
     Indication: MALIGNANT MELANOMA
     Dosage: UNK
     Route: 065
     Dates: start: 201802
  7. BRAFTOVI [Suspect]
     Active Substance: ENCORAFENIB
     Dosage: 450 MG, EVERYDAY
     Route: 048
     Dates: start: 20200103, end: 20200303
  8. OPDIVO [Suspect]
     Active Substance: NIVOLUMAB
     Indication: MALIGNANT MELANOMA
     Dosage: UNK
     Route: 041
     Dates: start: 201711, end: 20180109
  9. TAFINLAR [Suspect]
     Active Substance: DABRAFENIB MESYLATE
     Dosage: REDUCED BY ONE LEVEL
     Route: 065
     Dates: start: 202007
  10. MEKINIST [Suspect]
     Active Substance: TRAMETINIB DIMETHYL SULFOXIDE
     Dosage: UNK
     Route: 065
     Dates: start: 202006, end: 202007
  11. TAFINLAR [Suspect]
     Active Substance: DABRAFENIB MESYLATE
     Dosage: UNK
     Route: 065
     Dates: start: 202006, end: 202007
  12. MEKTOVI [Suspect]
     Active Substance: BINIMETINIB
     Indication: MALIGNANT MELANOMA
     Dosage: 90 MG, EVERYDAY
     Route: 048
     Dates: start: 20191112, end: 20191226
  13. BRAFTOVI [Suspect]
     Active Substance: ENCORAFENIB
     Indication: MALIGNANT MELANOMA
     Dosage: 450 MG, EVERYDAY
     Route: 048
     Dates: start: 20191112, end: 20191226
  14. MEKINIST [Suspect]
     Active Substance: TRAMETINIB DIMETHYL SULFOXIDE
     Indication: MALIGNANT MELANOMA
     Dosage: UNK
     Route: 065
     Dates: start: 201802
  15. PEMBROLIZUMAB. [Concomitant]
     Active Substance: PEMBROLIZUMAB
     Indication: MALIGNANT MELANOMA
     Dosage: UNK
     Route: 065
     Dates: start: 201905, end: 20191021
  16. DACARBAZINE. [Concomitant]
     Active Substance: DACARBAZINE
     Indication: MALIGNANT MELANOMA
     Dosage: UNK
     Route: 065
     Dates: end: 20180806

REACTIONS (3)
  - Hepatic function abnormal [Recovered/Resolved]
  - Serous retinal detachment [Recovered/Resolved]
  - Hepatic function abnormal [Recovered/Resolved]

NARRATIVE: CASE EVENT DATE: 20191119
